FAERS Safety Report 7157653-7 (Version None)
Quarter: 2010Q4

REPORT INFORMATION
  Report Type: 
  Country: None (occurrence: None)
  Receive Date: 20101214
  Receipt Date: 20100310
  Transmission Date: 20110411
  Serious: No
  Sender: FDA-Public Use
  Company Number: US-ASTRAZENECA-2010SE10430

PATIENT
  Age: 37 Year
  Sex: Male
  Weight: 68 kg

DRUGS (5)
  1. CRESTOR [Suspect]
     Indication: HYPERCHOLESTEROLAEMIA
     Route: 048
     Dates: start: 20100201, end: 20100301
  2. XANAX [Concomitant]
  3. PRISTIQ [Concomitant]
  4. ULTRAM [Concomitant]
  5. THYROID PILL [Concomitant]

REACTIONS (4)
  - BACK PAIN [None]
  - BREAST PAIN [None]
  - MUSCULOSKELETAL PAIN [None]
  - NECK PAIN [None]
